FAERS Safety Report 4369400-2 (Version None)
Quarter: 2004Q2

REPORT INFORMATION
  Report Type: 
  Country: None (occurrence: None)
  Receive Date: 20040528
  Receipt Date: 20040512
  Transmission Date: 20050107
  Serious: Yes (Other)
  Sender: FDA-Public Use
  Company Number: 200402148

PATIENT
  Age: 24 Year
  Sex: Female
  Weight: 95.2554 kg

DRUGS (2)
  1. BOTOX COSMETIC [Suspect]
     Indication: SKIN WRINKLING
     Dosage: 45 UNITS PRN IM
     Route: 030
     Dates: start: 20040325
  2. BIRTH CONTROL PILLS [Concomitant]

REACTIONS (3)
  - CONVULSION [None]
  - HEARING IMPAIRED [None]
  - SYNCOPE VASOVAGAL [None]
